FAERS Safety Report 5317707-4 (Version None)
Quarter: 2007Q2

REPORT INFORMATION
  Report Type: 
  Country: None (occurrence: None)
  Receive Date: 20070507
  Receipt Date: 20070504
  Transmission Date: 20071010
  Serious: Yes (Other)
  Sender: FDA-Public Use
  Company Number: GB-BRISTOL-MYERS SQUIBB COMPANY-13769823

PATIENT
  Age: 56 Year
  Sex: Male

DRUGS (4)
  1. CARBOPLATIN [Suspect]
     Indication: LUNG NEOPLASM MALIGNANT
  2. GEMCITABINE HCL [Suspect]
     Indication: LUNG NEOPLASM MALIGNANT
  3. DEXAMETHASONE 0.5MG TAB [Suspect]
  4. MOVICOL [Suspect]
     Indication: FAECALOMA
     Route: 048
     Dates: start: 20070309

REACTIONS (2)
  - BLOOD ALBUMIN DECREASED [None]
  - OEDEMA PERIPHERAL [None]
